FAERS Safety Report 4840068-1 (Version None)
Quarter: 2005Q4

REPORT INFORMATION
  Report Type: 
  Country: None (occurrence: None)
  Receive Date: 20051125
  Receipt Date: 20051116
  Transmission Date: 20060501
  Serious: Yes (Other)
  Sender: FDA-Public Use
  Company Number: 2005156746

PATIENT
  Age: 48 Year
  Sex: Female

DRUGS (2)
  1. NICORETTE INHALER (INICOTINE) [Suspect]
     Indication: SMOKING CESSATION THERAPY
     Dosage: INHALATION
     Route: 055
     Dates: start: 20050101
  2. NICOTINE RESIN (NICOTINE RESIN) [Suspect]
     Indication: SMOKING CESSATION THERAPY
     Dosage: ORAL TOPICAL
     Dates: start: 20050101

REACTIONS (1)
  - DRUG DEPENDENCE [None]
